FAERS Safety Report 6348366-X (Version None)
Quarter: 2009Q3

REPORT INFORMATION
  Report Type: 
  Country: None (occurrence: None)
  Receive Date: 20090908
  Receipt Date: 20090820
  Transmission Date: 20100115
  Serious: Yes (Other)
  Sender: FDA-Public Use
  Company Number: 2008AL008839

PATIENT
  Age: 50 Year
  Sex: Male

DRUGS (12)
  1. DIGOXIN [Suspect]
     Dosage: PO
  2. LASIX [Concomitant]
  3. COZAAR [Concomitant]
  4. ALDACTONE [Concomitant]
  5. NAPROSYN [Concomitant]
  6. FISH OIL [Concomitant]
  7. LORTAB [Concomitant]
  8. ARTHROTEC [Concomitant]
  9. XOPENEX [Concomitant]
  10. . [Concomitant]
  11. . [Concomitant]
  12. . [Concomitant]

REACTIONS (23)
  - ANAEMIA [None]
  - ARTHRALGIA [None]
  - BACK PAIN [None]
  - BLOOD PRESSURE FLUCTUATION [None]
  - BRONCHITIS [None]
  - CONGESTIVE CARDIOMYOPATHY [None]
  - CONSTIPATION [None]
  - DIABETES MELLITUS [None]
  - DIZZINESS [None]
  - EJECTION FRACTION DECREASED [None]
  - HAEMORRHOIDS [None]
  - HYPERLIPIDAEMIA [None]
  - JOINT SWELLING [None]
  - MULTIPLE INJURIES [None]
  - MUSCLE SPASMS [None]
  - MYOCARDIAL INFARCTION [None]
  - NEUROPATHY PERIPHERAL [None]
  - OROPHARYNGEAL PAIN [None]
  - RADICULOPATHY [None]
  - SLEEP APNOEA SYNDROME [None]
  - UPPER RESPIRATORY TRACT INFECTION [None]
  - VISUAL ACUITY REDUCED [None]
  - WEIGHT DECREASED [None]
